FAERS Safety Report 13242874 (Version 3)
Quarter: 2017Q4

REPORT INFORMATION
  Report Type: Spontaneous
  Country: US (occurrence: US)
  Receive Date: 20170216
  Receipt Date: 20171013
  Transmission Date: 20180320
  Serious: Yes (Hospitalization)
  Sender: FDA-Public Use
  Company Number: US-VIFOR (INTERNATIONAL) INC.-VIT-2017-00339

PATIENT
  Age: 85 Year
  Sex: Female
  Weight: 52.66 kg

DRUGS (7)
  1. CARVEDILOL. [Concomitant]
     Active Substance: CARVEDILOL
  2. LISINOPRIL. [Concomitant]
     Active Substance: LISINOPRIL
  3. LASIX [Concomitant]
     Active Substance: FUROSEMIDE
  4. ECOTRIN [Concomitant]
     Active Substance: ASPIRIN
  5. MILRINONE LACTATE. [Concomitant]
     Active Substance: MILRINONE LACTATE
     Indication: RENAL DISORDER
  6. MILRINONE LACTATE. [Concomitant]
     Active Substance: MILRINONE LACTATE
     Indication: CARDIAC DISORDER
  7. VELTASSA [Suspect]
     Active Substance: PATIROMER
     Indication: HYPERKALAEMIA
     Route: 048
     Dates: start: 20161004

REACTIONS (3)
  - Upper limb fracture [Recovered/Resolved]
  - Fall [Recovered/Resolved]
  - Dizziness [Recovered/Resolved]

NARRATIVE: CASE EVENT DATE: 20161226
